FAERS Safety Report 8935060 (Version 1)
Quarter: 2012Q4

REPORT INFORMATION
  Report Type: 
  Country: US (occurrence: US)
  Receive Date: 20121129
  Receipt Date: 20121129
  Transmission Date: 20130627
  Serious: Yes (Other)
  Sender: FDA-Public Use
  Company Number: US-PFIZER INC-2012297993

PATIENT
  Age: 56 Year
  Sex: Male
  Weight: 84.81 kg

DRUGS (6)
  1. LYRICA [Suspect]
     Indication: NEUROPATHY
     Dosage: 75 mg, UNK
     Dates: start: 2011
  2. LYRICA [Suspect]
     Indication: SCIATIC NEURALGIA
     Dosage: 150 mg, 3x/day
  3. LYRICA [Suspect]
     Dosage: 225 mg, 2x/day
     Dates: start: 201205
  4. NAPROXEN [Concomitant]
     Indication: PAIN
     Dosage: 500 mg, 2x/day
  5. CYCLOBENZAPRINE [Concomitant]
     Indication: MUSCLE RELAXANT
     Dosage: 10 mg tablets, 2x/day (one tablet in morning and two tablets at night)
     Route: 048
  6. DOXYCYCLINE [Concomitant]
     Indication: SWELLING
     Dosage: 100 mg, 2x/day

REACTIONS (4)
  - Hypoaesthesia [Not Recovered/Not Resolved]
  - Burning sensation [Not Recovered/Not Resolved]
  - Back pain [Not Recovered/Not Resolved]
  - Drug effect incomplete [Unknown]
